FAERS Safety Report 9452734 (Version 1)
Quarter: 2013Q3

REPORT INFORMATION
  Report Type: Spontaneous
  Country: US (occurrence: None)
  Receive Date: 20130807
  Receipt Date: 20130807
  Transmission Date: 20140515
  Serious: Yes (Other)
  Sender: FDA-Public Use
  Company Number: 2013P1013813

PATIENT
  Age: 61 Year
  Sex: Female

DRUGS (1)
  1. METHYLPREDNISOLONE [Suspect]
     Indication: UPPER RESPIRATORY TRACT INFECTION
     Route: 048
     Dates: start: 20130709, end: 20130713

REACTIONS (7)
  - Insomnia [None]
  - Agitation [None]
  - Nervousness [None]
  - Feeling jittery [None]
  - Multiple allergies [None]
  - Upper-airway cough syndrome [None]
  - Pyrexia [None]
